FAERS Safety Report 7783002-7 (Version None)
Quarter: 2011Q3

REPORT INFORMATION
  Report Type: 
  Country: None (occurrence: None)
  Receive Date: 20110928
  Receipt Date: 20110926
  Transmission Date: 20111222
  Serious: No
  Sender: FDA-Public Use
  Company Number: US-PFIZER INC-2011228744

PATIENT
  Sex: Female

DRUGS (3)
  1. SIMVASTATIN [Suspect]
     Dosage: 5 MG, DAILY
     Route: 048
  2. AMLODIPINE [Concomitant]
     Dosage: UNK
  3. LIPITOR [Suspect]
     Dosage: UNK
     Route: 048

REACTIONS (3)
  - FATIGUE [None]
  - MYALGIA [None]
  - ARTHRALGIA [None]
